FAERS Safety Report 20141530 (Version 2)
Quarter: 2021Q4

REPORT INFORMATION
  Report Type: Spontaneous
  Country: US (occurrence: US)
  Receive Date: 20211202
  Receipt Date: 20211231
  Transmission Date: 20220303
  Serious: Yes (Other)
  Sender: FDA-Public Use
  Company Number: US-BAYER-2021A260894

PATIENT
  Age: 38 Year
  Sex: Female

DRUGS (4)
  1. MIRENA [Suspect]
     Active Substance: LEVONORGESTREL
     Indication: Intra-uterine contraceptive device insertion
     Dosage: 20?G/DAY
     Route: 015
     Dates: start: 20190821, end: 20211112
  2. CLARITIN [Concomitant]
     Active Substance: LORATADINE
  3. LEXAPRO [Concomitant]
     Active Substance: ESCITALOPRAM OXALATE
  4. MINERALS\VITAMINS [Suspect]
     Active Substance: MINERALS\VITAMINS

REACTIONS (6)
  - Device dislocation [Not Recovered/Not Resolved]
  - Heavy menstrual bleeding [None]
  - Dyspareunia [None]
  - Hydrometra [None]
  - Inadequate lubrication [None]
  - Vulvovaginal dryness [None]
